FAERS Safety Report 7781405-8 (Version None)
Quarter: 2011Q3

REPORT INFORMATION
  Report Type: 
  Country: None (occurrence: None)
  Receive Date: 20110923
  Receipt Date: 20110909
  Transmission Date: 20111222
  Serious: Yes (Hospitalization, Other)
  Sender: FDA-Public Use
  Company Number: US-2011-10679

PATIENT
  Age: 41 Year
  Sex: Male

DRUGS (3)
  1. CICLOSPORINE (CICLOSPORINE) [Concomitant]
  2. BUSULFEX [Suspect]
     Dosage: 3.2 MG/KG, DAILY DOSE, INTRAVENOUS
     Route: 042
     Dates: start: 20110816, end: 20110819
  3. CYCLOPHOSPHAMIDE [Suspect]
     Indication: BONE MARROW CONDITIONING REGIMEN
     Dosage: 60 MG/KG, QD,

REACTIONS (17)
  - CHOLELITHIASIS [None]
  - RESPIRATORY DISORDER [None]
  - BONE MARROW FAILURE [None]
  - SOMNOLENCE [None]
  - MULTI-ORGAN DISORDER [None]
  - OVERDOSE [None]
  - NEUROLOGICAL DECOMPENSATION [None]
  - BACILLUS INFECTION [None]
  - MUCOSAL INFLAMMATION [None]
  - HYPERBILIRUBINAEMIA [None]
  - RENAL FAILURE [None]
  - CONFUSIONAL STATE [None]
  - MIOSIS [None]
  - PATHOGEN RESISTANCE [None]
  - SEPSIS [None]
  - CHOLANGITIS [None]
  - EJECTION FRACTION DECREASED [None]
